FAERS Safety Report 8746884 (Version 2)
Quarter: 2012Q4

REPORT INFORMATION
  Report Type: 
  Country: US (occurrence: US)
  Receive Date: 20120827
  Receipt Date: 20121009
  Transmission Date: 20130627
  Serious: Yes (Other)
  Sender: FDA-Public Use
  Company Number: US-NOVOPROD-357826

PATIENT
  Age: 68 Year
  Sex: Female
  Weight: 47.17 kg

DRUGS (5)
  1. VAGIFEM LD [Suspect]
     Indication: ATROPHIC VULVOVAGINITIS
     Dosage: 10 mcg, qd
     Route: 067
     Dates: start: 2002
  2. VAGIFEM LD [Suspect]
     Dosage: 5 mcg, qd
     Route: 067
     Dates: start: 2002
  3. MELATONIN [Concomitant]
     Indication: PRODUCT USED FOR UNKNOWN INDICATION
     Route: 048
  4. GLUCOSAMINE [Concomitant]
     Indication: PRODUCT USED FOR UNKNOWN INDICATION
     Route: 048
  5. VITAMINS                           /00067501/ [Concomitant]
     Indication: PRODUCT USED FOR UNKNOWN INDICATION

REACTIONS (2)
  - Uterine leiomyoma [Not Recovered/Not Resolved]
  - Vaginal haemorrhage [Recovered/Resolved]
